FAERS Safety Report 17389589 (Version 2)
Quarter: 2020Q2

REPORT INFORMATION
  Report Type: Spontaneous
  Country: US (occurrence: US)
  Receive Date: 20200207
  Receipt Date: 20200408
  Transmission Date: 20200713
  Serious: Yes (Other)
  Sender: FDA-Public Use
  Company Number: US-DRREDDYS-USA/USA/20/0119308

PATIENT
  Age: 19 Year
  Sex: Male

DRUGS (1)
  1. FINASTERIDE. [Suspect]
     Active Substance: FINASTERIDE
     Indication: ANDROGENETIC ALOPECIA
     Dosage: DURATION OF 2-3 YEARS.
     Route: 065

REACTIONS (11)
  - Ejaculation disorder [Not Recovered/Not Resolved]
  - Depression [Not Recovered/Not Resolved]
  - Erectile dysfunction [Not Recovered/Not Resolved]
  - Insomnia [Not Recovered/Not Resolved]
  - Amnesia [Unknown]
  - Fatigue [Not Recovered/Not Resolved]
  - Genital disorder [Unknown]
  - Libido decreased [Not Recovered/Not Resolved]
  - Dissociation [Not Recovered/Not Resolved]
  - Feeling abnormal [Unknown]
  - Testicular pain [Unknown]
